FAERS Safety Report 4571214-5 (Version None)
Quarter: 2005Q1

REPORT INFORMATION
  Report Type: 
  Country: None (occurrence: None)
  Receive Date: 20050202
  Receipt Date: 20050112
  Transmission Date: 20050727
  Serious: Yes (Hospitalization)
  Sender: FDA-Public Use
  Company Number: USA041080650

PATIENT
  Age: 75 Year
  Sex: Female

DRUGS (1)
  1. FORTEO [Suspect]
     Indication: OSTEOPOROSIS
     Dosage: 20 UG DAY
     Dates: start: 20040326, end: 20040414

REACTIONS (6)
  - DRY MOUTH [None]
  - FALL [None]
  - FORMICATION [None]
  - FRACTURE [None]
  - MUSCLE SPASMS [None]
  - NAUSEA [None]
